FAERS Safety Report 7647829-4 (Version None)
Quarter: 2011Q3

REPORT INFORMATION
  Report Type: 
  Country: None (occurrence: None)
  Receive Date: 20110726
  Receipt Date: 20110711
  Transmission Date: 20111222
  Serious: Yes (Other)
  Sender: FDA-Public Use
  Company Number: 11-050

PATIENT
  Age: 40 Year
  Sex: Female

DRUGS (1)
  1. CETIRIZINE HCL [Suspect]
     Indication: ALLERGIC SINUSITIS
     Dosage: 10 MG, QD;
     Dates: start: 20100501, end: 20100501

REACTIONS (7)
  - MYASTHENIA GRAVIS [None]
  - DIPLOPIA [None]
  - FACIAL PARESIS [None]
  - TRISMUS [None]
  - DYSPHAGIA [None]
  - CONDITION AGGRAVATED [None]
  - DYSPHONIA [None]
